FAERS Safety Report 8536111-9 (Version None)
Quarter: 2012Q3

REPORT INFORMATION
  Report Type: 
  Country: None (occurrence: None)
  Receive Date: 20120725
  Receipt Date: 20120717
  Transmission Date: 20120928
  Serious: Yes (Other)
  Sender: FDA-Public Use
  Company Number: JP-ASTELLAS-2012JP006711

PATIENT
  Age: 75 Year
  Sex: Male

DRUGS (1)
  1. MIRABEGRON [Suspect]
     Dosage: UNK
     Route: 048
     Dates: start: 20120709, end: 20120717

REACTIONS (1)
  - VENTRICULAR TACHYCARDIA [None]
